FAERS Safety Report 7584968-0 (Version None)
Quarter: 2011Q2

REPORT INFORMATION
  Report Type: 
  Country: None (occurrence: None)
  Receive Date: 20110630
  Receipt Date: 20110621
  Transmission Date: 20111010
  Serious: Yes (Other)
  Sender: FDA-Public Use
  Company Number: JP-ASTRAZENECA-2011SE38541

PATIENT
  Age: 50 Year
  Sex: Female

DRUGS (4)
  1. SEROQUEL [Suspect]
     Route: 048
  2. DULOXETIME HYDROCHLORIDE [Suspect]
     Indication: DEPRESSION
     Route: 048
  3. DULOXETIME HYDROCHLORIDE [Suspect]
     Route: 048
  4. SEROQUEL [Suspect]
     Indication: INSOMNIA
     Route: 048

REACTIONS (2)
  - SEROTONIN SYNDROME [None]
  - OFF LABEL USE [None]
